FAERS Safety Report 18893376 (Version 1)
Quarter: 2021Q1

REPORT INFORMATION
  Report Type: Spontaneous
  Country: NO (occurrence: NO)
  Receive Date: 20210215
  Receipt Date: 20210215
  Transmission Date: 20210420
  Serious: Yes (Hospitalization)
  Sender: FDA-Public Use
  Company Number: NO-TAKEDA-2021TUS005892

PATIENT
  Age: 21 Month
  Sex: Female

DRUGS (5)
  1. FIRAZYR [Suspect]
     Active Substance: ICATIBANT ACETATE
     Indication: ACQUIRED C1 INHIBITOR DEFICIENCY
     Dosage: 10 MILLIGRAM
     Route: 058
  2. FIRAZYR [Suspect]
     Active Substance: ICATIBANT ACETATE
     Indication: ACQUIRED C1 INHIBITOR DEFICIENCY
     Dosage: 10 MILLIGRAM
     Route: 058
  3. CINRYZE [Suspect]
     Active Substance: HUMAN C1-ESTERASE INHIBITOR
     Indication: ACQUIRED C1 INHIBITOR DEFICIENCY
     Dosage: UNK
     Route: 042
  4. CINRYZE [Suspect]
     Active Substance: HUMAN C1-ESTERASE INHIBITOR
     Indication: ACQUIRED C1 INHIBITOR DEFICIENCY
     Dosage: UNK
     Route: 042
  5. CINRYZE [Suspect]
     Active Substance: HUMAN C1-ESTERASE INHIBITOR
     Indication: ACQUIRED C1 INHIBITOR DEFICIENCY
     Dosage: UNK
     Route: 042

REACTIONS (2)
  - Off label use [Unknown]
  - Hereditary angioedema [Unknown]
